FAERS Safety Report 5484541-4 (Version None)
Quarter: 2007Q4

REPORT INFORMATION
  Report Type: 
  Country: None (occurrence: None)
  Receive Date: 20071012
  Receipt Date: 20071001
  Transmission Date: 20080405
  Serious: Yes (Hospitalization)
  Sender: FDA-Public Use
  Company Number: GB-PFIZER INC-2007082291

PATIENT
  Sex: Female
  Weight: 80.7 kg

DRUGS (6)
  1. SU-011,248 [Suspect]
     Indication: RENAL CELL CARCINOMA STAGE UNSPECIFIED
     Route: 048
  2. AMLODIPINE [Concomitant]
     Route: 048
  3. PYRIDOXINE HCL [Concomitant]
     Route: 048
  4. LISTERINE ANTISEPTIC MOUTHWASH [Concomitant]
     Route: 048
  5. LANSOPRAZOLE [Concomitant]
     Route: 048
  6. LOPERAMIDE HCL [Concomitant]
     Route: 048

REACTIONS (1)
  - PNEUMONIA [None]
